FAERS Safety Report 5401478-7 (Version None)
Quarter: 2007Q3

REPORT INFORMATION
  Report Type: 
  Country: None (occurrence: None)
  Receive Date: 20070731
  Receipt Date: 20060629
  Transmission Date: 20080115
  Serious: No
  Sender: FDA-Public Use
  Company Number: A0610809A

PATIENT
  Age: 76 Year
  Sex: Female

DRUGS (7)
  1. DYAZIDE [Suspect]
     Dosage: 37.5MG PER DAY
     Route: 048
     Dates: start: 20060629
  2. AVANDIA [Concomitant]
  3. STARLIX [Concomitant]
  4. LOPID [Concomitant]
  5. TENORMIN [Concomitant]
  6. EYE DROPS [Concomitant]
  7. FORADIL [Concomitant]

REACTIONS (1)
  - DRUG INEFFECTIVE [None]
